FAERS Safety Report 7011571-3 (Version None)
Quarter: 2010Q3

REPORT INFORMATION
  Report Type: 
  Country: None (occurrence: None)
  Receive Date: 20100923
  Receipt Date: 20090225
  Transmission Date: 20110219
  Serious: Yes (Hospitalization, Other)
  Sender: FDA-Public Use
  Company Number: US-WYE-H08392409

PATIENT
  Sex: Female

DRUGS (4)
  1. PREMARIN [Suspect]
     Indication: HOT FLUSH
  2. PREMARIN [Suspect]
     Indication: NIGHT SWEATS
  3. ESTRIOL [Suspect]
  4. PROGESTERONE [Suspect]

REACTIONS (1)
  - OVARIAN CANCER METASTATIC [None]
